FAERS Safety Report 11032830 (Version 1)
Quarter: 2015Q2

REPORT INFORMATION
  Report Type: Spontaneous
  Country: CA (occurrence: CA)
  Receive Date: 20150415
  Receipt Date: 20150415
  Transmission Date: 20150821
  Serious: Yes (Other)
  Sender: FDA-Public Use
  Company Number: CA-TEVA-554450ACC

PATIENT
  Age: 40 Year
  Sex: Male
  Weight: 99.88 kg

DRUGS (2)
  1. OLANZAPINE. [Suspect]
     Active Substance: OLANZAPINE
     Indication: SCHIZOPHRENIA
     Dosage: 10 MILLIGRAM DAILY;
     Route: 060
  2. MODECATE CONCENTRATE [Concomitant]
     Dosage: UNKNOWN FORM STRENGTH
     Route: 030

REACTIONS (2)
  - Paranoia [Unknown]
  - Delusion [Unknown]
